FAERS Safety Report 9732252 (Version 1)
Quarter: 2013Q4

REPORT INFORMATION
  Report Type: Spontaneous
  Country: US (occurrence: None)
  Receive Date: 20131204
  Receipt Date: 20131204
  Transmission Date: 20140711
  Serious: No
  Sender: FDA-Public Use
  Company Number: None

PATIENT
  Age: 64 Year
  Sex: Male

DRUGS (1)
  1. ZYTIGA 250MG JANNSEN [Suspect]
     Route: 048
     Dates: start: 20131107, end: 20131202

REACTIONS (3)
  - Chest pain [None]
  - Asthenia [None]
  - Nervousness [None]
